FAERS Safety Report 7558297-5 (Version None)
Quarter: 2011Q2

REPORT INFORMATION
  Report Type: 
  Country: None (occurrence: None)
  Receive Date: 20110620
  Receipt Date: 20110615
  Transmission Date: 20111010
  Serious: Yes (Other)
  Sender: FDA-Public Use
  Company Number: US-AMGEN-USASP2011030930

PATIENT
  Sex: Female

DRUGS (4)
  1. NEULASTA [Suspect]
     Indication: CHEMOTHERAPY
     Dosage: UNK
     Dates: start: 20110527, end: 20110527
  2. NEUPOGEN [Suspect]
     Indication: CHEMOTHERAPY
     Dosage: 480 A?G, QD
     Dates: start: 20110611
  3. ETOPOSIDE [Concomitant]
     Dosage: 100 MG/M2, Q3WK
     Dates: start: 20110301
  4. CARBOPLATIN [Concomitant]
     Dosage: UNK UNK, Q3WK
     Dates: start: 20110301

REACTIONS (3)
  - WHITE BLOOD CELL COUNT DECREASED [None]
  - DRUG RESISTANCE [None]
  - PLATELET COUNT DECREASED [None]
